FAERS Safety Report 9932021 (Version 1)
Quarter: 2014Q1

REPORT INFORMATION
  Report Type: Spontaneous
  Country: US (occurrence: US)
  Receive Date: 20140228
  Receipt Date: 20140228
  Transmission Date: 20141002
  Serious: No
  Sender: FDA-Public Use
  Company Number: US-ABBVIE-13P-163-1109986-00

PATIENT
  Age: 72 Year
  Sex: Male
  Weight: 86.26 kg

DRUGS (2)
  1. ANDROGEL [Suspect]
     Indication: BLOOD TESTOSTERONE DECREASED
     Route: 061
  2. ANDRODERM [Concomitant]
     Indication: BLOOD TESTOSTERONE DECREASED
     Dosage: INTERMITTENTLY, WHEN NOT TAKING ANDROGEL

REACTIONS (2)
  - Application site pain [Not Recovered/Not Resolved]
  - Drug administration error [Not Recovered/Not Resolved]
